FAERS Safety Report 9190572 (Version 2)
Quarter: 2013Q2

REPORT INFORMATION
  Report Type: Report from Study
  Country: GR (occurrence: GR)
  Receive Date: 20130326
  Receipt Date: 20130402
  Transmission Date: 20140414
  Serious: Yes (Hospitalization)
  Sender: FDA-Public Use
  Company Number: GR-AMGEN-GRCCT2013014005

PATIENT
  Age: 64 Year
  Sex: Male
  Weight: 91 kg

DRUGS (11)
  1. PANITUMUMAB [Suspect]
     Indication: COLORECTAL CANCER METASTATIC
     Dosage: 819 MG, Q3WK
     Route: 042
     Dates: start: 20121122
  2. ELOXATIN [Concomitant]
     Indication: COLORECTAL CANCER METASTATIC
     Dosage: 260 MG, Q3WK
     Route: 042
     Dates: start: 20121122
  3. XELODA [Concomitant]
     Indication: COLORECTAL CANCER METASTATIC
     Dosage: 4000 MG, UNK
     Route: 048
     Dates: start: 20121122
  4. ZOFRON [Concomitant]
     Indication: PREMEDICATION
     Dosage: 8 MG, AS NECESSARY
     Route: 042
     Dates: start: 20121122
  5. ZANTAC [Concomitant]
     Indication: PREMEDICATION
     Dosage: 50 MG, AS NECESSARY
     Route: 042
     Dates: start: 20121122
  6. FENISTIL [Concomitant]
     Indication: PREMEDICATION
     Dosage: 8 MG, AS NECESSARY
     Route: 042
     Dates: start: 20121122
  7. DEXAMETHASONE [Concomitant]
     Indication: PREMEDICATION
     Dosage: 4 MG, AS NECESSARY
     Route: 042
     Dates: start: 20121122
  8. ZYLORIC [Concomitant]
     Indication: HYPERURICAEMIA
     Dosage: 100 MG, QD
  9. LOBIVON [Concomitant]
     Indication: HYPERTENSION
     Dosage: 5 MG, QD
  10. TRIATEC PLUS [Concomitant]
     Indication: HYPERTENSION
     Dosage: 30 MG, QD
  11. GLUCOPHAGE [Concomitant]
     Indication: DIABETES MELLITUS
     Dosage: 850 MG, QD
     Dates: end: 20130208

REACTIONS (1)
  - Enterocolitis infectious [Recovered/Resolved]
